FAERS Safety Report 6057434-1 (Version None)
Quarter: 2009Q1

REPORT INFORMATION
  Report Type: 
  Country: None (occurrence: None)
  Receive Date: 20090129
  Receipt Date: 20090121
  Transmission Date: 20090719
  Serious: Yes (Other)
  Sender: FDA-Public Use
  Company Number: US-ELI_LILLY_AND_COMPANY-US200812004867

PATIENT
  Sex: Male
  Weight: 151.93 kg

DRUGS (2)
  1. HUMALOG [Suspect]
     Dosage: 100 U, UNK
     Dates: start: 20030101, end: 20081217
  2. HUMULIN R [Suspect]
     Dosage: UNK, UNK
     Dates: start: 20081217

REACTIONS (9)
  - ABDOMINAL DISCOMFORT [None]
  - FEELING ABNORMAL [None]
  - GASTRIC BANDING [None]
  - INFLUENZA LIKE ILLNESS [None]
  - OESOPHAGEAL DISORDER [None]
  - PROCEDURAL COMPLICATION [None]
  - REFLUX OESOPHAGITIS [None]
  - SURGICAL FAILURE [None]
  - WEIGHT INCREASED [None]
